FAERS Safety Report 11397148 (Version 1)
Quarter: 2015Q3

REPORT INFORMATION
  Report Type: Report from Study
  Country: TR (occurrence: TR)
  Receive Date: 20150819
  Receipt Date: 20150819
  Transmission Date: 20151125
  Serious: Yes (Other)
  Sender: FDA-Public Use
  Company Number: TR-BAXALTA-2015BLT001037

PATIENT
  Age: 5 Year
  Sex: Male
  Weight: 34 kg

DRUGS (1)
  1. FEIBA [Suspect]
     Active Substance: ANTI-INHIBITOR COAGULANT COMPLEX
     Indication: FACTOR VIII DEFICIENCY
     Dosage: 2000 U, 2X A WEEK
     Route: 065
     Dates: start: 20150625

REACTIONS (3)
  - Haemarthrosis [Recovered/Resolved]
  - Joint swelling [Recovered/Resolved]
  - Fall [Unknown]

NARRATIVE: CASE EVENT DATE: 20150806
